FAERS Safety Report 15164050 (Version 1)
Quarter: 2018Q3

REPORT INFORMATION
  Report Type: Spontaneous
  Country: CH (occurrence: CH)
  Receive Date: 20180719
  Receipt Date: 20180719
  Transmission Date: 20181010
  Serious: Yes (Death, Other)
  Sender: FDA-Public Use
  Company Number: CH-TEVA-2018-CH-926147

PATIENT
  Age: 59 Year
  Sex: Male

DRUGS (18)
  1. OXALIPLATINE [Suspect]
     Active Substance: OXALIPLATIN
     Dosage: 1ST CYCLE
     Route: 041
     Dates: start: 20180310, end: 20180404
  2. FOLCI ACID [Concomitant]
     Dosage: 1ST CYCLE
     Dates: start: 20180310, end: 20180404
  3. FOLCI ACID [Concomitant]
     Dosage: 2ND CYCLE
     Dates: start: 20180412, end: 20180412
  4. OXALIPLATINE [Suspect]
     Active Substance: OXALIPLATIN
     Route: 041
     Dates: start: 20180412, end: 20180412
  5. DEXAMETHASONE. [Suspect]
     Active Substance: DEXAMETHASONE
     Dosage: IN TOTAL
     Route: 042
     Dates: start: 20180412, end: 20180412
  6. NEBIVOLOL. [Suspect]
     Active Substance: NEBIVOLOL
     Dosage: 5 MILLIGRAM DAILY;
     Route: 065
     Dates: start: 20180406, end: 20180414
  7. ONDANSETRON [Concomitant]
     Active Substance: ONDANSETRON
     Dosage: IN TOTAL
     Route: 042
     Dates: start: 20180310, end: 20180404
  8. ATROPINE. [Concomitant]
     Active Substance: ATROPINE
     Dosage: IN TOTAL
     Route: 042
     Dates: start: 20180310, end: 20180404
  9. FLUOROURACILE [Suspect]
     Active Substance: FLUOROURACIL
     Dosage: 1ST CYCLE
     Route: 041
     Dates: start: 20180310, end: 20180404
  10. FILGRASTIM TEVA [Concomitant]
     Active Substance: FILGRASTIM
     Dosage: DF = 30 MIO  ; IN TOTAL
     Route: 042
     Dates: start: 20180415, end: 20180415
  11. FLUOROURACILE [Suspect]
     Active Substance: FLUOROURACIL
     Dosage: 2ND CYCLE ; IN TOTAL
     Route: 041
     Dates: start: 20180412, end: 20180412
  12. TORASEMIDE [Suspect]
     Active Substance: TORSEMIDE
     Dosage: 15 MILLIGRAM DAILY;
     Route: 065
     Dates: start: 20180406, end: 20180416
  13. TEMGESIC [Concomitant]
     Active Substance: BUPRENORPHINE HYDROCHLORIDE
     Dates: start: 20180403, end: 20180415
  14. DEXAMETHASONE. [Suspect]
     Active Substance: DEXAMETHASONE
     Dosage: IN TOTAL
     Route: 042
     Dates: start: 20180310, end: 20180404
  15. MEPHAMESONE [Suspect]
     Active Substance: DEXAMETHASONE
     Dosage: 12 MILLIGRAM DAILY;
     Route: 042
     Dates: start: 20180402, end: 20180423
  16. ONDANSETRON [Concomitant]
     Active Substance: ONDANSETRON
     Dosage: IN TOTAL
     Route: 042
     Dates: start: 20180412, end: 20180412
  17. IRINOTECAN [Suspect]
     Active Substance: IRINOTECAN
     Dosage: 1ST CYCLE
     Route: 041
     Dates: start: 20180310, end: 20180404
  18. NEXIUM [Suspect]
     Active Substance: ESOMEPRAZOLE MAGNESIUM
     Dosage: 40 MILLIGRAM DAILY;
     Route: 042
     Dates: start: 20180403, end: 20180425

REACTIONS (3)
  - Agranulocytosis [Recovered/Resolved]
  - Thrombocytopenia [Recovered/Resolved]
  - Haematochezia [Fatal]

NARRATIVE: CASE EVENT DATE: 20180415
